FAERS Safety Report 11936935 (Version 4)
Quarter: 2016Q1

REPORT INFORMATION
  Report Type: Spontaneous
  Country: US (occurrence: US)
  Receive Date: 20160121
  Receipt Date: 20160317
  Transmission Date: 20160526
  Serious: Yes (Other)
  Sender: FDA-Public Use
  Company Number: US-FRI-1000082155

PATIENT
  Age: 17 Year
  Sex: Male
  Weight: 49.9 kg

DRUGS (4)
  1. FETZIMA [Suspect]
     Active Substance: LEVOMILNACIPRAN HYDROCHLORIDE
     Indication: OBSESSIVE-COMPULSIVE DISORDER
     Route: 048
     Dates: start: 20160109, end: 20160115
  2. MULTI-VITE [Concomitant]
  3. VITAMIN C [Concomitant]
     Active Substance: ASCORBIC ACID
  4. FETZIMA [Suspect]
     Active Substance: LEVOMILNACIPRAN HYDROCHLORIDE
     Indication: ANXIETY
     Dosage: 40MG
     Route: 048
     Dates: start: 20151221, end: 20160109

REACTIONS (4)
  - Abdominal pain upper [Recovered/Resolved]
  - Off label use [Recovered/Resolved]
  - Pancreatitis [Recovered/Resolved]
  - Pancreatic enzymes increased [Recovered/Resolved]

NARRATIVE: CASE EVENT DATE: 20151221
